FAERS Safety Report 13565078 (Version 1)
Quarter: 2017Q2

REPORT INFORMATION
  Report Type: Spontaneous
  Country: US (occurrence: US)
  Receive Date: 20170519
  Receipt Date: 20170519
  Transmission Date: 20170830
  Serious: No
  Sender: FDA-Public Use
  Company Number: US-SHIRE-US201709978

PATIENT
  Sex: Female

DRUGS (1)
  1. XIIDRA [Suspect]
     Active Substance: LIFITEGRAST
     Indication: DRY EYE
     Dosage: UNK UNK, UNKNOWN
     Route: 047
     Dates: start: 201704

REACTIONS (12)
  - Ocular discomfort [Unknown]
  - Instillation site irritation [Unknown]
  - Dizziness [Unknown]
  - Eye discharge [Unknown]
  - Headache [Unknown]
  - Conjunctival hyperaemia [Unknown]
  - Vision blurred [Unknown]
  - Dysgeusia [Unknown]
  - Sinusitis [Unknown]
  - Lacrimation increased [Unknown]
  - Eye pruritus [Unknown]
  - Instillation site reaction [Unknown]
